FAERS Safety Report 20769176 (Version 1)
Quarter: 2022Q2

REPORT INFORMATION
  Report Type: Spontaneous
  Country: JP (occurrence: JP)
  Receive Date: 20220429
  Receipt Date: 20220429
  Transmission Date: 20220721
  Serious: Yes (Other)
  Sender: FDA-Public Use
  Company Number: JP-SLATE RUN PHARMACEUTICALS-22JP001054

PATIENT

DRUGS (2)
  1. CILOSTAZOL [Suspect]
     Active Substance: CILOSTAZOL
     Indication: Transient ischaemic attack
     Dosage: 200 MILLIGRAM
  2. ASPIRIN [Suspect]
     Active Substance: ASPIRIN
     Indication: Transient ischaemic attack
     Dosage: 100 MILLIGRAM

REACTIONS (3)
  - Carotid artery occlusion [Recovered/Resolved]
  - Collateral circulation [Unknown]
  - Drug ineffective [Unknown]
